FAERS Safety Report 4786005-X (Version None)
Quarter: 2005Q3

REPORT INFORMATION
  Report Type: 
  Country: None (occurrence: None)
  Receive Date: 20050930
  Receipt Date: 20050808
  Transmission Date: 20060218
  Serious: Yes (Death, Hospitalization, Other)
  Sender: FDA-Public Use
  Company Number: 2005-08-0258

PATIENT
  Age: 60 Year
  Sex: Female
  Weight: 100 kg

DRUGS (5)
  1. TEMODAL [Suspect]
     Indication: CEREBRAL DISORDER
     Dosage: SEE IMAGE
     Route: 048
     Dates: start: 20050711, end: 20050731
  2. TEMODAL [Suspect]
     Indication: NEOPLASM
     Dosage: SEE IMAGE
     Route: 048
     Dates: start: 20050711, end: 20050731
  3. TEMODAL [Suspect]
  4. TEMODAL [Suspect]
  5. DEXAMETHASONE [Concomitant]

REACTIONS (7)
  - DEPRESSED LEVEL OF CONSCIOUSNESS [None]
  - GENERALISED OEDEMA [None]
  - HEPATIC FAILURE [None]
  - HEPATOTOXICITY [None]
  - OEDEMA PERIPHERAL [None]
  - OLIGURIA [None]
  - URINE OUTPUT DECREASED [None]
